FAERS Safety Report 9643271 (Version 3)
Quarter: 2015Q2

REPORT INFORMATION
  Report Type: Report from Study
  Country: US (occurrence: US)
  Receive Date: 20131024
  Receipt Date: 20150519
  Transmission Date: 20150821
  Serious: Yes (Hospitalization, Other)
  Sender: FDA-Public Use
  Company Number: US-ABBVIE-13P-163-1157886-00

PATIENT
  Age: 49 Year
  Sex: Female
  Weight: 67.19 kg

DRUGS (23)
  1. HUMIRA [Suspect]
     Active Substance: ADALIMUMAB
     Dosage: FOUR WEEKS AFTER 160 MG DOSE
     Route: 058
     Dates: start: 20150411
  2. LOPRIN [Concomitant]
     Indication: HEPATIC STEATOSIS
  3. ATIVAN [Concomitant]
     Active Substance: LORAZEPAM
     Indication: INSOMNIA
  4. FLU VACCINE [Concomitant]
     Active Substance: INFLUENZA VIRUS VACCINE
     Indication: PRODUCT USED FOR UNKNOWN INDICATION
     Dates: start: 20130925, end: 20130925
  5. HUMIRA [Suspect]
     Active Substance: ADALIMUMAB
     Dosage: FOUR WEEKS AFTER 160 MG DOSE
     Route: 058
     Dates: start: 20130302, end: 2015
  6. PENTASA [Suspect]
     Active Substance: MESALAMINE
     Indication: CROHN^S DISEASE
     Route: 065
     Dates: end: 2013
  7. ROZEREM [Concomitant]
     Active Substance: RAMELTEON
     Indication: INSOMNIA
  8. ONDANSETRON [Concomitant]
     Active Substance: ONDANSETRON
     Indication: NAUSEA
  9. VITAMIN C [Concomitant]
     Active Substance: ASCORBIC ACID
     Indication: VITAMIN SUPPLEMENTATION
  10. DEXILANT [Concomitant]
     Active Substance: DEXLANSOPRAZOLE
     Indication: GASTROOESOPHAGEAL REFLUX DISEASE
  11. ZANAFLEX [Concomitant]
     Active Substance: TIZANIDINE HYDROCHLORIDE
     Indication: MUSCLE SPASMS
  12. HUMIRA [Suspect]
     Active Substance: ADALIMUMAB
     Indication: CROHN^S DISEASE
     Dosage: ONE DOSE
     Route: 058
     Dates: start: 20130202, end: 20130202
  13. FISH OIL [Suspect]
     Active Substance: FISH OIL
     Indication: PRODUCT USED FOR UNKNOWN INDICATION
     Route: 065
     Dates: end: 2013
  14. DEXILANT [Concomitant]
     Active Substance: DEXLANSOPRAZOLE
     Indication: HIATUS HERNIA
  15. RESTASIS [Concomitant]
     Active Substance: CYCLOSPORINE
     Indication: DRY EYE
  16. FLEXERIL [Suspect]
     Active Substance: CYCLOBENZAPRINE HYDROCHLORIDE
     Indication: PRODUCT USED FOR UNKNOWN INDICATION
     Route: 065
     Dates: end: 2013
  17. CYMBALTA [Suspect]
     Active Substance: DULOXETINE HYDROCHLORIDE
     Indication: INTERVERTEBRAL DISC DEGENERATION
     Route: 065
     Dates: end: 2013
  18. CYMBALTA [Suspect]
     Active Substance: DULOXETINE HYDROCHLORIDE
     Route: 065
     Dates: start: 2013
  19. MULTIVITAMIN [Concomitant]
     Active Substance: VITAMINS
     Indication: VITAMIN SUPPLEMENTATION
  20. PATANOL [Concomitant]
     Active Substance: OLOPATADINE HYDROCHLORIDE
     Indication: DRY EYE
  21. HUMIRA [Suspect]
     Active Substance: ADALIMUMAB
     Dosage: ONE DOSE, TWO WEEKS AFTER 160 MG DOSE
     Route: 058
     Dates: start: 20130216, end: 20130216
  22. RANITIDINE [Suspect]
     Active Substance: RANITIDINE\RANITIDINE HYDROCHLORIDE
     Indication: PRODUCT USED FOR UNKNOWN INDICATION
     Route: 065
     Dates: end: 2013
  23. PROBIOTICS [Concomitant]
     Active Substance: PROBIOTICS NOS
     Indication: CROHN^S DISEASE

REACTIONS (23)
  - Colitis [Unknown]
  - Diarrhoea [Unknown]
  - Abdominal pain [Not Recovered/Not Resolved]
  - Lipase increased [Recovered/Resolved]
  - Haematoma [Recovered/Resolved]
  - Diarrhoea [Recovered/Resolved]
  - Vomiting [Recovered/Resolved]
  - Varicose vein [Recovered/Resolved]
  - Pancreatitis [Recovered/Resolved]
  - Dehydration [Unknown]
  - Blood potassium decreased [Unknown]
  - Cystitis [Recovered/Resolved]
  - Injection site pain [Not Recovered/Not Resolved]
  - Stomatitis [Not Recovered/Not Resolved]
  - Stomatitis [Recovered/Resolved]
  - Injection site pain [Recovered/Resolved]
  - Dehydration [Unknown]
  - Amylase increased [Recovered/Resolved]
  - Pyrexia [Recovered/Resolved]
  - Gastroenteritis viral [Unknown]
  - Asthenia [Not Recovered/Not Resolved]
  - Nausea [Not Recovered/Not Resolved]
  - Nausea [Recovered/Resolved]

NARRATIVE: CASE EVENT DATE: 201307
